FAERS Safety Report 17101644 (Version 1)
Quarter: 2019Q4

REPORT INFORMATION
  Report Type: Spontaneous
  Country: DE (occurrence: DE)
  Receive Date: 20191202
  Receipt Date: 20191202
  Transmission Date: 20200122
  Serious: Yes (Hospitalization)
  Sender: FDA-Public Use
  Company Number: NVSC2019DE047170

PATIENT
  Age: 15 Year
  Sex: Female
  Weight: 49 kg

DRUGS (1)
  1. PARACETAMOL [Suspect]
     Active Substance: ACETAMINOPHEN
     Indication: SUICIDAL IDEATION
     Dosage: 4500 MG, ONCE/SINGLE (EVERY TOTAL 9 SEPARATED DOSES)
     Route: 048
     Dates: start: 20190702, end: 20190702

REACTIONS (2)
  - Intentional overdose [Recovered/Resolved]
  - Suicidal ideation [Recovered/Resolved]

NARRATIVE: CASE EVENT DATE: 20190702
